FAERS Safety Report 4771992-6 (Version None)
Quarter: 2005Q3

REPORT INFORMATION
  Report Type: 
  Country: None (occurrence: None)
  Receive Date: 20050916
  Receipt Date: 20050912
  Transmission Date: 20060218
  Serious: Yes (Hospitalization)
  Sender: FDA-Public Use
  Company Number: AU-MERCK-0509AUS00074

PATIENT
  Age: 49 Year
  Sex: Female

DRUGS (5)
  1. ZOCOR [Suspect]
     Route: 048
     Dates: start: 20040501, end: 20050605
  2. GEMFIBROZIL [Suspect]
     Route: 048
     Dates: start: 20050510, end: 20050605
  3. IRBESARTAN [Concomitant]
     Route: 048
  4. RAMIPRIL [Concomitant]
     Route: 048
  5. DILTIAZEM HYDROCHLORIDE [Concomitant]
     Route: 048

REACTIONS (6)
  - ALANINE AMINOTRANSFERASE INCREASED [None]
  - ASPARTATE AMINOTRANSFERASE INCREASED [None]
  - BLOOD CREATINE PHOSPHOKINASE INCREASED [None]
  - BLOOD CREATININE INCREASED [None]
  - MYALGIA [None]
  - RENAL DISORDER [None]
